FAERS Safety Report 5518035-4 (Version None)
Quarter: 2007Q4

REPORT INFORMATION
  Report Type: 
  Country: None (occurrence: None)
  Receive Date: 20071115
  Receipt Date: 20071109
  Transmission Date: 20080405
  Serious: Yes (Other)
  Sender: FDA-Public Use
  Company Number: TR-BRISTOL-MYERS SQUIBB COMPANY-13980578

PATIENT
  Age: 55 Year
  Sex: Female

DRUGS (4)
  1. CETUXIMAB [Suspect]
     Indication: COLORECTAL CANCER
     Dosage: RECEIVED ON 11MAY06.CETUXIMAB-2 MG/ML
     Route: 042
     Dates: start: 20060511, end: 20060511
  2. FLUOROURACIL [Suspect]
     Indication: COLORECTAL CANCER
  3. FOLINIC ACID [Suspect]
     Indication: COLORECTAL CANCER
  4. OXALIPLATIN [Suspect]
     Indication: COLORECTAL CANCER

REACTIONS (1)
  - FEBRILE NEUTROPENIA [None]
